FAERS Safety Report 6324577-4 (Version None)
Quarter: 2009Q3

REPORT INFORMATION
  Report Type: 
  Country: None (occurrence: None)
  Receive Date: 20090824
  Receipt Date: 20090323
  Transmission Date: 20100115
  Serious: No
  Sender: FDA-Public Use
  Company Number: US-ABBOTT-09P-163-0564217-00

PATIENT
  Sex: Female

DRUGS (1)
  1. NIASPAN [Suspect]
     Indication: DRUG USE FOR UNKNOWN INDICATION
     Dates: start: 20090309, end: 20090323

REACTIONS (7)
  - ASTHENIA [None]
  - DIZZINESS [None]
  - ERYTHEMA [None]
  - FEELING HOT [None]
  - INSOMNIA [None]
  - PARAESTHESIA [None]
  - SYNCOPE [None]
